FAERS Safety Report 16238275 (Version 8)
Quarter: 2021Q2

REPORT INFORMATION
  Report Type: Spontaneous
  Country: US (occurrence: US)
  Receive Date: 20190425
  Receipt Date: 20210421
  Transmission Date: 20210716
  Serious: No
  Sender: FDA-Public Use
  Company Number: US-PFIZER INC-2019166842

PATIENT
  Age: 81 Year
  Sex: Male
  Weight: 104 kg

DRUGS (11)
  1. LYRICA CR [Suspect]
     Active Substance: PREGABALIN
     Indication: NEURALGIA
     Dosage: 330 MG, 1X/DAY (TWO TABLETS ONCE DAILY)
  2. LYRICA CR [Suspect]
     Active Substance: PREGABALIN
     Indication: NEUROPATHY PERIPHERAL
     Dosage: 330 MG, 2X/DAY (EVERY 12 HOURS FOR 90 DAYS)
  3. ELIQUIS [Concomitant]
     Active Substance: APIXABAN
     Indication: ATRIAL FIBRILLATION
     Dosage: 2.5 MG, 2X/DAY
     Dates: start: 201901
  4. ALLOPURINOL. [Concomitant]
     Active Substance: ALLOPURINOL
     Indication: GOUT
     Dosage: 300 MG, DAILY
  5. LYRICA CR [Suspect]
     Active Substance: PREGABALIN
     Dosage: 660 MG, DAILY (330 MG, 2 TABS DAILY)
     Route: 048
     Dates: start: 20190530
  6. PRADAXA [Concomitant]
     Active Substance: DABIGATRAN ETEXILATE MESYLATE
     Dosage: 150 MG, UNK
  7. ATORVASTATIN [Concomitant]
     Active Substance: ATORVASTATIN
     Indication: BLOOD CHOLESTEROL ABNORMAL
     Dosage: 20 MG, DAILY
     Dates: start: 2018
  8. LYRICA CR [Suspect]
     Active Substance: PREGABALIN
     Dosage: 165 MG, DAILY
     Route: 048
     Dates: start: 201901, end: 201901
  9. LANTUS [Concomitant]
     Active Substance: INSULIN GLARGINE
     Indication: TYPE 2 DIABETES MELLITUS
     Dosage: 20 IU, 1X/DAY
     Dates: start: 2018
  10. LYRICA CR [Suspect]
     Active Substance: PREGABALIN
     Dosage: 660 MG, 1X/DAY [TAKE 2 CAPSULES BY MOUTH ONCE A DAY]
     Route: 048
  11. LOSARTAN. [Concomitant]
     Active Substance: LOSARTAN
     Indication: BLOOD PRESSURE ABNORMAL
     Dosage: 50 MG, DAILY
     Dates: start: 2018

REACTIONS (2)
  - Drug ineffective [Unknown]
  - Off label use [Unknown]

NARRATIVE: CASE EVENT DATE: 201901
